FAERS Safety Report 13395079 (Version 1)
Quarter: 2017Q2

REPORT INFORMATION
  Report Type: Spontaneous
  Country: US (occurrence: US)
  Receive Date: 20170403
  Receipt Date: 20170403
  Transmission Date: 20170830
  Serious: Yes (Hospitalization)
  Sender: FDA-Public Use
  Company Number: US-STRIDES ARCOLAB LIMITED-2016SP002423

PATIENT

DRUGS (7)
  1. ACETAMINOPHEN. [Concomitant]
     Active Substance: ACETAMINOPHEN
     Indication: PYREXIA
     Dosage: UNK
  2. IBUPROFEN. [Suspect]
     Active Substance: IBUPROFEN
     Indication: NAUSEA
  3. IBUPROFEN. [Suspect]
     Active Substance: IBUPROFEN
     Indication: PAIN
  4. IBUPROFEN. [Suspect]
     Active Substance: IBUPROFEN
     Indication: VOMITING
  5. IBUPROFEN. [Suspect]
     Active Substance: IBUPROFEN
     Indication: PYREXIA
     Dosage: UNK
  6. ACETAMINOPHEN. [Concomitant]
     Active Substance: ACETAMINOPHEN
     Indication: PAIN
  7. IBUPROFEN. [Suspect]
     Active Substance: IBUPROFEN
     Indication: FATIGUE

REACTIONS (7)
  - Disorientation [Recovered/Resolved]
  - Influenza like illness [Recovered/Resolved]
  - Pyrexia [Recovered/Resolved]
  - Meningitis aseptic [Recovered/Resolved]
  - Mental status changes [Recovered/Resolved]
  - Generalised tonic-clonic seizure [Recovered/Resolved]
  - Encephalitis [Recovered/Resolved]
